FAERS Safety Report 9726350 (Version 2)
Quarter: 2014Q1

REPORT INFORMATION
  Report Type: Spontaneous
  Country: BR (occurrence: BR)
  Receive Date: 20131203
  Receipt Date: 20140304
  Transmission Date: 20141002
  Serious: Yes (Other)
  Sender: FDA-Public Use
  Company Number: BR-ABBVIE-13P-020-1175321-00

PATIENT
  Age: 52 Year
  Sex: Female

DRUGS (4)
  1. SYNTHROID [Suspect]
     Indication: PRODUCT USED FOR UNKNOWN INDICATION
     Route: 048
  2. SYNTHROID [Suspect]
     Dosage: FORM STRENGTH: 125 MCG AND 137 MCG, DAILY DOSE:1 TABLET
     Route: 048
  3. SYNTHROID [Suspect]
  4. ALL OTHER THERAPEUTIC PRODUCTS [Concomitant]
     Indication: PRODUCT USED FOR UNKNOWN INDICATION

REACTIONS (4)
  - Thyroid neoplasm [Recovered/Resolved]
  - Thyroiditis [Recovered/Resolved]
  - Drug dispensing error [Recovered/Resolved]
  - Blood cholesterol increased [Recovered/Resolved]
